FAERS Safety Report 6438966-0 (Version None)
Quarter: 2009Q4

REPORT INFORMATION
  Report Type: 
  Country: None (occurrence: None)
  Receive Date: 20091111
  Receipt Date: 20091111
  Transmission Date: 20100525
  Serious: Yes (Hospitalization)
  Sender: FDA-Public Use
  Company Number: None

PATIENT
  Age: 78 Year
  Sex: Male
  Weight: 113 kg

DRUGS (1)
  1. NABUMETONE [Suspect]
     Indication: RHEUMATOID ARTHRITIS
     Dates: start: 20070727, end: 20090427

REACTIONS (2)
  - GASTRIC HAEMORRHAGE [None]
  - HAEMATEMESIS [None]
